FAERS Safety Report 6759597-9 (Version None)
Quarter: 2010Q2

REPORT INFORMATION
  Report Type: 
  Country: None (occurrence: None)
  Receive Date: 20100608
  Receipt Date: 20100601
  Transmission Date: 20101027
  Serious: Yes (Hospitalization)
  Sender: FDA-Public Use
  Company Number: US-BIOGENIDEC-2010BI018056

PATIENT
  Age: 50 Year
  Sex: Male
  Weight: 88 kg

DRUGS (4)
  1. AVONEX [Suspect]
     Indication: MULTIPLE SCLEROSIS
     Route: 030
     Dates: start: 20080728
  2. DICYCLOMINE [Concomitant]
     Indication: IRRITABLE BOWEL SYNDROME
     Route: 048
     Dates: start: 20060101
  3. PREVACID [Concomitant]
     Indication: DYSPEPSIA
     Route: 048
     Dates: start: 19970101
  4. PREVACID [Concomitant]
     Indication: GASTRIC ULCER
     Route: 048
     Dates: start: 19970101

REACTIONS (1)
  - GASTRIC ULCER [None]
